FAERS Safety Report 21250613 (Version 2)
Quarter: 2022Q4

REPORT INFORMATION
  Report Type: Report from Study
  Country: US (occurrence: US)
  Receive Date: 20220824
  Receipt Date: 20221216
  Transmission Date: 20230113
  Serious: Yes (Other)
  Sender: FDA-Public Use
  Company Number: US-ABBVIE-22K-163-4514719-00

PATIENT
  Age: 72 Year
  Sex: Female
  Weight: 77 kg

DRUGS (1)
  1. RINVOQ [Suspect]
     Active Substance: UPADACITINIB
     Indication: Rheumatoid arthritis
     Route: 048

REACTIONS (2)
  - Surgery [Unknown]
  - Surgery [Unknown]

NARRATIVE: CASE EVENT DATE: 20220602
